FAERS Safety Report 21896570 (Version 3)
Quarter: 2023Q1

REPORT INFORMATION
  Report Type: Report from Study
  Country: DZ (occurrence: None)
  Receive Date: 20230123
  Receipt Date: 20230206
  Transmission Date: 20230418
  Serious: Yes (Hospitalization)
  Sender: FDA-Public Use
  Company Number: DZ-Merck Healthcare KGaA-9379125

PATIENT
  Age: 30 Year
  Sex: Male

DRUGS (4)
  1. REBIF [Suspect]
     Active Substance: INTERFERON BETA-1A
     Indication: Multiple sclerosis
     Route: 058
     Dates: start: 20220223, end: 20230117
  2. TEGRETOL [Concomitant]
     Active Substance: CARBAMAZEPINE
     Indication: Brain abscess
  3. TEGRETOL [Concomitant]
     Active Substance: CARBAMAZEPINE
     Indication: Surgery
  4. TEGRETOL [Concomitant]
     Active Substance: CARBAMAZEPINE
     Indication: Ear operation

REACTIONS (4)
  - Hypokinesia [Recovered/Resolved]
  - Gait disturbance [Recovered/Resolved]
  - Irritability [Unknown]
  - Intentional product misuse [Recovering/Resolving]

NARRATIVE: CASE EVENT DATE: 20230117
